FAERS Safety Report 9088000 (Version 1)
Quarter: 2013Q1

REPORT INFORMATION
  Report Type: Report from Study
  Country: US (occurrence: US)
  Receive Date: 20130201
  Receipt Date: 20130201
  Transmission Date: 20140127
  Serious: Yes (Other)
  Sender: FDA-Public Use
  Company Number: US-ABBOTT-12P-163-1028001-00

PATIENT
  Age: 18 Year
  Sex: Female

DRUGS (3)
  1. HUMIRA [Suspect]
     Indication: CROHN^S DISEASE
     Dates: start: 20121206, end: 20121206
  2. HUMIRA [Suspect]
     Dosage: LOADING DOSE
     Dates: start: 20121227
  3. ASACOL [Concomitant]
     Indication: CROHN^S DISEASE

REACTIONS (5)
  - Crohn^s disease [Unknown]
  - Abscess [Recovering/Resolving]
  - Wrong technique in drug usage process [Recovering/Resolving]
  - Incorrect dose administered [Recovering/Resolving]
  - Device malfunction [Recovering/Resolving]
